FAERS Safety Report 5820220-9 (Version None)
Quarter: 2008Q3

REPORT INFORMATION
  Report Type: 
  Country: None (occurrence: None)
  Receive Date: 20080724
  Receipt Date: 20080723
  Transmission Date: 20090109
  Serious: Yes (Hospitalization)
  Sender: FDA-Public Use
  Company Number: PHEH1999US01108

PATIENT
  Sex: Male

DRUGS (11)
  1. RAD 666 RAD+ [Suspect]
     Dosage: 0.75 MG, BID
     Route: 048
     Dates: start: 19990216, end: 19990303
  2. NEORAL [Suspect]
     Route: 048
  3. PREDNISONE TAB [Concomitant]
  4. NYSTATIN [Concomitant]
  5. GANTRISIN (SULFAFURAZOLE) [Concomitant]
  6. ATENOLOL [Concomitant]
  7. COLACE (DOCUSATE SODIUM) [Concomitant]
  8. PEPCID [Concomitant]
  9. SIMVASTATIN [Concomitant]
  10. ACETAMINOPHEN [Concomitant]
  11. PROCARDIA [Concomitant]

REACTIONS (4)
  - ATRIAL FIBRILLATION [None]
  - BLOOD CREATININE INCREASED [None]
  - CHEST PAIN [None]
  - DRUG LEVEL INCREASED [None]
